FAERS Safety Report 8473755-7 (Version None)
Quarter: 2012Q2

REPORT INFORMATION
  Report Type: 
  Country: None (occurrence: None)
  Receive Date: 20120628
  Receipt Date: 20120111
  Transmission Date: 20120825
  Serious: Yes (Death)
  Sender: FDA-Public Use
  Company Number: US-MYLANLABS-2011S1021972

PATIENT
  Age: 74 Year
  Sex: Male
  Weight: 58.97 kg

DRUGS (2)
  1. CLOZAPINE [Suspect]
     Indication: PSYCHOTIC DISORDER
     Route: 048
  2. CLOZAPINE [Suspect]
     Route: 048

REACTIONS (1)
  - RENAL FAILURE ACUTE [None]
